FAERS Safety Report 14347369 (Version 1)
Quarter: 2018Q1

REPORT INFORMATION
  Report Type: Spontaneous
  Country: US (occurrence: US)
  Receive Date: 20180103
  Receipt Date: 20180103
  Transmission Date: 20180509
  Serious: Yes (Life-Threatening, Disabling, Other)
  Sender: FDA-Public Use
  Company Number: None

PATIENT
  Age: 50 Year
  Sex: Male
  Weight: 99.79 kg

DRUGS (2)
  1. VIOLTIUM D [Concomitant]
  2. FLUOROURACIL. [Suspect]
     Active Substance: FLUOROURACIL
     Indication: SKIN CANCER
     Dosage: 40 G 2 PUFFS 2X 24 HR ON SKIN
     Route: 061
     Dates: start: 20171130, end: 20171214

REACTIONS (2)
  - Dehydration [None]
  - Photosensitivity reaction [None]
